FAERS Safety Report 16766624 (Version 3)
Quarter: 2019Q4

REPORT INFORMATION
  Report Type: Spontaneous
  Country: US (occurrence: US)
  Receive Date: 20190903
  Receipt Date: 20191010
  Transmission Date: 20200122
  Serious: No
  Sender: FDA-Public Use
  Company Number: US-PFIZER INC-2019370892

PATIENT
  Age: 61 Year
  Sex: Female
  Weight: 55.79 kg

DRUGS (3)
  1. TRINTELLIX [Concomitant]
     Active Substance: VORTIOXETINE HYDROBROMIDE
     Indication: DEPRESSION
     Dosage: UNK
  2. LYRICA [Suspect]
     Active Substance: PREGABALIN
     Dosage: 225 MG, 2X/DAY (2 CAPSULES DAILY)
     Route: 048
  3. LYRICA [Suspect]
     Active Substance: PREGABALIN
     Indication: FIBROMYALGIA
     Dosage: UNK, 2X/DAY
     Dates: start: 2011

REACTIONS (20)
  - Hypersensitivity [Not Recovered/Not Resolved]
  - Headache [Unknown]
  - Dehydration [Unknown]
  - Pain [Unknown]
  - Dizziness [Unknown]
  - Paranasal sinus discomfort [Unknown]
  - Dry mouth [Unknown]
  - Temperature intolerance [Unknown]
  - Malaise [Unknown]
  - Withdrawal syndrome [Unknown]
  - Depression [Unknown]
  - Nausea [Unknown]
  - Vomiting [Unknown]
  - Constipation [Unknown]
  - Fibromyalgia [Not Recovered/Not Resolved]
  - Fatigue [Unknown]
  - Myalgia [Unknown]
  - Gastric disorder [Unknown]
  - Dry skin [Unknown]
  - Insomnia [Unknown]
